FAERS Safety Report 7825003-6 (Version None)
Quarter: 2011Q4

REPORT INFORMATION
  Report Type: 
  Country: None (occurrence: None)
  Receive Date: 20111019
  Receipt Date: 20111014
  Transmission Date: 20120403
  Serious: Yes (Disabling)
  Sender: FDA-Public Use
  Company Number: US-MERCK-1103USA03602

PATIENT
  Age: 25 Year
  Sex: Male

DRUGS (2)
  1. PROPECIA [Suspect]
     Indication: ALOPECIA
     Route: 048
     Dates: start: 19980101
  2. PROSCAR [Suspect]
     Indication: ALOPECIA
     Route: 048
     Dates: start: 20080101

REACTIONS (6)
  - INTENTIONAL DRUG MISUSE [None]
  - ANHEDONIA [None]
  - ANXIETY [None]
  - DEPRESSION [None]
  - SEXUAL DYSFUNCTION [None]
  - MEMORY IMPAIRMENT [None]
